FAERS Safety Report 5693892-X (Version None)
Quarter: 2008Q2

REPORT INFORMATION
  Report Type: 
  Country: None (occurrence: None)
  Receive Date: 20080403
  Receipt Date: 20080325
  Transmission Date: 20081010
  Serious: Yes (Other)
  Sender: FDA-Public Use
  Company Number: US-PFIZER INC-2008014817

PATIENT
  Sex: Male
  Weight: 95.3 kg

DRUGS (3)
  1. DILANTIN [Suspect]
     Indication: CONVULSION
     Route: 048
  2. PHENOBARBITAL TAB [Concomitant]
  3. ACYCLOVIR [Concomitant]

REACTIONS (2)
  - GAIT DISTURBANCE [None]
  - THERAPEUTIC AGENT TOXICITY [None]
